FAERS Safety Report 15575976 (Version 1)
Quarter: 2018Q4

REPORT INFORMATION
  Report Type: Spontaneous
  Country: US (occurrence: US)
  Receive Date: 20181101
  Receipt Date: 20181101
  Transmission Date: 20190205
  Serious: No
  Sender: FDA-Public Use
  Company Number: US-MIST-TIR-2018-0325

PATIENT
  Age: 78 Year
  Sex: Female
  Weight: 93.07 kg

DRUGS (2)
  1. NONSTEROIDAL ANTI-INFLAMMATORY DRUG (NSAID) [Concomitant]
     Indication: ARTHRITIS
  2. TIROSINT [Suspect]
     Active Substance: LEVOTHYROXINE SODIUM
     Indication: HYPOTHYROIDISM
     Dosage: 150MCG DAILY
     Route: 048
     Dates: start: 2011

REACTIONS (2)
  - Thyroid function test abnormal [Unknown]
  - Drug level above therapeutic [Unknown]

NARRATIVE: CASE EVENT DATE: 201803
